FAERS Safety Report 5904650-2 (Version None)
Quarter: 2008Q4

REPORT INFORMATION
  Report Type: 
  Country: None (occurrence: None)
  Receive Date: 20081001
  Receipt Date: 20080918
  Transmission Date: 20090506
  Serious: Yes (Life-Threatening)
  Sender: FDA-Public Use
  Company Number: GB-BAYER-200827177GPV

PATIENT
  Age: 44 Year
  Sex: Male
  Weight: 86 kg

DRUGS (5)
  1. REFLUDAN [Suspect]
     Indication: HEPARIN-INDUCED THROMBOCYTOPENIA
     Route: 058
     Dates: start: 20080905, end: 20080906
  2. ESOMEPRAZOLE MAGNESIUM [Concomitant]
     Indication: PROPHYLAXIS AGAINST GASTROINTESTINAL ULCER
     Route: 042
     Dates: start: 20080828
  3. FLOXACILLIN SODIUM [Concomitant]
     Indication: INFECTION
     Route: 042
     Dates: start: 20080902
  4. AMOXICILLIN [Concomitant]
     Indication: INFECTION
     Route: 042
     Dates: start: 20080905
  5. ACETAMINOPHEN [Concomitant]
     Indication: PAIN
     Route: 042
     Dates: start: 20080826

REACTIONS (1)
  - POST PROCEDURAL HAEMORRHAGE [None]
